FAERS Safety Report 9295328 (Version 1)
Quarter: 2013Q2

REPORT INFORMATION
  Report Type: Spontaneous
  Country: US (occurrence: US)
  Receive Date: 20130517
  Receipt Date: 20130517
  Transmission Date: 20140414
  Serious: Yes (Hospitalization)
  Sender: FDA-Public Use
  Company Number: US-BAYER-2013-060360

PATIENT
  Age: 26 Year
  Sex: Female
  Weight: 100.23 kg

DRUGS (6)
  1. YAZ [Suspect]
     Indication: DYSFUNCTIONAL UTERINE BLEEDING
  2. LEXAPRO [Concomitant]
  3. CHANTIX [Concomitant]
  4. CITALOPRAM [Concomitant]
  5. CEPHALEXIN [Concomitant]
  6. LOTRISONE [Concomitant]

REACTIONS (1)
  - Pulmonary embolism [None]
